FAERS Safety Report 18944092 (Version 1)
Quarter: 2021Q1

REPORT INFORMATION
  Report Type: Other
  Country: SK (occurrence: SK)
  Receive Date: 20210226
  Receipt Date: 20210226
  Transmission Date: 20210420
  Serious: Yes (Other)
  Sender: FDA-Public Use
  Company Number: SK-ROCHE-2776963

PATIENT

DRUGS (8)
  1. BENDAMUSTINE [Suspect]
     Active Substance: BENDAMUSTINE
     Indication: B-CELL LYMPHOMA
     Dosage: RECEIVED B?CELL LYMPHOMA; FOUR CYCLES OF COMBINED CHEMOTHERAPY
     Route: 065
  2. RITUXIMAB. [Suspect]
     Active Substance: RITUXIMAB
     Indication: B-CELL LYMPHOMA
     Dosage: RECEIVED B?CELL LYMPHOMA; FOUR CYCLES OF COMBINED CHEMOTHERAPY
     Route: 065
  3. BENDAMUSTINE [Suspect]
     Active Substance: BENDAMUSTINE
     Dosage: RECEIVED B?CELL LYMPHOMA; FOUR CYCLES OF COMBINED CHEMOTHERAPY
     Route: 065
  4. BENDAMUSTINE [Suspect]
     Active Substance: BENDAMUSTINE
     Dosage: RECEIVED B?CELL LYMPHOMA; FOUR CYCLES OF COMBINED CHEMOTHERAPY
     Route: 065
  5. RITUXIMAB. [Suspect]
     Active Substance: RITUXIMAB
     Dosage: RECEIVED B?CELL LYMPHOMA; FOUR CYCLES OF COMBINED CHEMOTHERAPY
     Route: 065
  6. RITUXIMAB. [Suspect]
     Active Substance: RITUXIMAB
     Dosage: RECEIVED B?CELL LYMPHOMA; FOUR CYCLES OF COMBINED CHEMOTHERAPY
     Route: 065
  7. RITUXIMAB. [Suspect]
     Active Substance: RITUXIMAB
     Dosage: RECEIVED B?CELL LYMPHOMA; FOUR CYCLES OF COMBINED CHEMOTHERAPY
     Route: 065
  8. BENDAMUSTINE [Suspect]
     Active Substance: BENDAMUSTINE
     Dosage: RECEIVED B?CELL LYMPHOMA; FOUR CYCLES OF COMBINED CHEMOTHERAPY
     Route: 065

REACTIONS (1)
  - Progressive multifocal leukoencephalopathy [Unknown]

NARRATIVE: CASE EVENT DATE: 202001
